FAERS Safety Report 7224916-6 (Version None)
Quarter: 2011Q1

REPORT INFORMATION
  Report Type: 
  Country: None (occurrence: None)
  Receive Date: 20110113
  Receipt Date: 20110104
  Transmission Date: 20110831
  Serious: Yes (Hospitalization, Other)
  Sender: FDA-Public Use
  Company Number: NL-ROCHE-751709

PATIENT
  Sex: Female

DRUGS (3)
  1. CAPECITABINE [Suspect]
     Indication: RECTAL CANCER METASTATIC
     Dosage: DISCONTINUED
     Route: 048
  2. OXALIPLATIN [Concomitant]
     Indication: RECTAL CANCER METASTATIC
  3. BEVACIZUMAB [Concomitant]
     Indication: RECTAL CANCER METASTATIC

REACTIONS (5)
  - MUCOSAL INFLAMMATION [None]
  - NEUTROPENIA [None]
  - DIARRHOEA [None]
  - DEHYDRATION [None]
  - ABDOMINAL PAIN [None]
